FAERS Safety Report 15642217 (Version 2)
Quarter: 2018Q4

REPORT INFORMATION
  Report Type: Spontaneous
  Country: RU (occurrence: RU)
  Receive Date: 20181121
  Receipt Date: 20181128
  Transmission Date: 20190205
  Serious: Yes (Death, Hospitalization, Other)
  Sender: FDA-Public Use
  Company Number: RU-TAKEDA-2018MPI016051

PATIENT

DRUGS (1)
  1. BORTEZOMIB. [Suspect]
     Active Substance: BORTEZOMIB
     Indication: PLASMA CELL MYELOMA
     Dosage: UNK
     Route: 065

REACTIONS (14)
  - Bacteraemia [Unknown]
  - Pneumonia [Fatal]
  - Skin infection [Unknown]
  - Granulocytopenia [Recovered/Resolved]
  - Pneumocystis jirovecii pneumonia [Unknown]
  - Bronchopulmonary aspergillosis [Unknown]
  - Soft tissue infection [Unknown]
  - Urinary tract infection [Unknown]
  - Herpes virus infection [Unknown]
  - Pyrexia [Unknown]
  - Sinusitis [Unknown]
  - Clostridium difficile colitis [Unknown]
  - Perineal infection [Unknown]
  - Acute respiratory failure [Fatal]
